FAERS Safety Report 6593703-4 (Version None)
Quarter: 2010Q1

REPORT INFORMATION
  Report Type: 
  Country: None (occurrence: None)
  Receive Date: 20100222
  Receipt Date: 20091207
  Transmission Date: 20100710
  Serious: No
  Sender: FDA-Public Use
  Company Number: US-BRISTOL-MYERS SQUIBB COMPANY-14884530

PATIENT
  Age: 6 Decade
  Sex: Male

DRUGS (2)
  1. ORENCIA [Suspect]
     Indication: RHEUMATOID ARTHRITIS
     Dates: start: 20091001
  2. METHOTREXATE [Concomitant]

REACTIONS (1)
  - DISTURBANCE IN ATTENTION [None]
